FAERS Safety Report 5531930-5 (Version None)
Quarter: 2007Q4

REPORT INFORMATION
  Report Type: 
  Country: None (occurrence: None)
  Receive Date: 20071203
  Receipt Date: 20071121
  Transmission Date: 20080405
  Serious: Yes (Hospitalization)
  Sender: FDA-Public Use
  Company Number: US-ROCHE-533170

PATIENT
  Age: 57 Year
  Sex: Male

DRUGS (2)
  1. PEGASYS [Suspect]
     Route: 065
     Dates: start: 20071021
  2. RIBAVIRIN [Suspect]
     Route: 065
     Dates: start: 20071021

REACTIONS (1)
  - LARGE INTESTINAL OBSTRUCTION [None]
